FAERS Safety Report 4763694-7 (Version None)
Quarter: 2005Q3

REPORT INFORMATION
  Report Type: 
  Country: None (occurrence: None)
  Receive Date: 20050908
  Receipt Date: 20041118
  Transmission Date: 20060218
  Serious: Yes (Hospitalization)
  Sender: FDA-Public Use
  Company Number: JP-GLAXOSMITHKLINE-B0357482A

PATIENT
  Age: 42 Year
  Sex: Male

DRUGS (10)
  1. COMBIVIR [Suspect]
     Indication: HIV INFECTION
     Dosage: 2TAB PER DAY
     Route: 048
     Dates: start: 20000606
  2. EFAVIRENZ [Suspect]
     Indication: HIV INFECTION
     Dosage: 600MG PER DAY
     Route: 048
     Dates: start: 20000606
  3. STOCRIN [Suspect]
     Indication: HIV INFECTION
     Dosage: 600MG PER DAY
     Route: 048
     Dates: start: 20000606
  4. PONTAL [Suspect]
     Indication: ARTHROPATHY
     Dosage: 250MG TWICE PER DAY
     Route: 048
     Dates: start: 20030401, end: 20040203
  5. AMLODIPINE [Concomitant]
     Indication: HYPERTENSION
     Dosage: 5MG PER DAY
     Route: 048
     Dates: start: 20030401, end: 20031215
  6. RENIVACE [Concomitant]
     Indication: HYPERTENSION
     Route: 048
     Dates: start: 20030401
  7. ANTIHEMOPHILIC FACTOR (HUMAN) [Concomitant]
  8. BISOPROLOL FUMARATE [Concomitant]
  9. UNSPECIFIED MEDICATION [Concomitant]
     Indication: FACTOR VIII DEFICIENCY
     Route: 042
     Dates: start: 20050401
  10. KOLANTYL [Concomitant]
     Dosage: 1G PER DAY
     Route: 048
     Dates: start: 20030415, end: 20040202

REACTIONS (7)
  - ABDOMINAL PAIN UPPER [None]
  - ANAEMIA [None]
  - GASTRIC ULCER [None]
  - HAEMATEMESIS [None]
  - HAEMORRHAGE [None]
  - HELICOBACTER INFECTION [None]
  - SCAR [None]
